FAERS Safety Report 7176423-7 (Version None)
Quarter: 2010Q4

REPORT INFORMATION
  Report Type: 
  Country: None (occurrence: None)
  Receive Date: 20101220
  Receipt Date: 20101207
  Transmission Date: 20110411
  Serious: Yes (Hospitalization)
  Sender: FDA-Public Use
  Company Number: DE-ELI_LILLY_AND_COMPANY-DE201012001839

PATIENT
  Sex: Female

DRUGS (4)
  1. FORTEO [Suspect]
     Indication: OSTEOPOROSIS
     Route: 058
     Dates: start: 20101029, end: 20101101
  2. NOVALGIN [Concomitant]
  3. INDOMET                            /00003801/ [Concomitant]
     Indication: DEHYDRATION
  4. PALLADONE [Concomitant]

REACTIONS (5)
  - ANXIETY [None]
  - CONTUSION [None]
  - DIZZINESS [None]
  - FALL [None]
  - PANIC ATTACK [None]
